FAERS Safety Report 12683384 (Version 1)
Quarter: 2016Q3

REPORT INFORMATION
  Report Type: Spontaneous
  Country: US (occurrence: US)
  Receive Date: 20160825
  Receipt Date: 20160825
  Transmission Date: 20161109
  Serious: No
  Sender: FDA-Public Use
  Company Number: US-PFIZER INC-2016392686

PATIENT
  Age: 49 Year
  Sex: Male
  Weight: 82.55 kg

DRUGS (4)
  1. CHAPSTICK SUN DEFENSE [Suspect]
     Active Substance: OCTINOXATE\OCTISALATE\OCTOCRYLENE\OXYBENZONE\PETROLATUM
     Dosage: EVERY DAY, ROLL IT OUT AND RUB ON LIPS
     Dates: start: 201602, end: 20160814
  2. CHAPSTICK SUN DEFENSE [Suspect]
     Active Substance: OCTINOXATE\OCTISALATE\OCTOCRYLENE\OXYBENZONE\PETROLATUM
     Dosage: EVERY DAY, ROLL IT OUT AND RUB ON LIPS
     Dates: start: 201602, end: 20160814
  3. CHAPSTICK SUN DEFENSE [Suspect]
     Active Substance: OCTINOXATE\OCTISALATE\OCTOCRYLENE\OXYBENZONE\PETROLATUM
     Dosage: EVERY DAY, ROLL IT OUT AND RUB ON LIPS
     Dates: start: 201602, end: 20160814
  4. CHAPSTICK SUN DEFENSE [Suspect]
     Active Substance: OCTINOXATE\OCTISALATE\OCTOCRYLENE\OXYBENZONE\PETROLATUM
     Dosage: EVERY DAY, ROLL IT OUT AND RUB ON LIPS
     Dates: start: 201602, end: 20160814

REACTIONS (3)
  - Product taste abnormal [Recovered/Resolved]
  - Poor quality drug administered [Recovered/Resolved]
  - Dysgeusia [Recovered/Resolved]

NARRATIVE: CASE EVENT DATE: 201602
